FAERS Safety Report 7938642-9 (Version None)
Quarter: 2011Q4

REPORT INFORMATION
  Report Type: 
  Country: None (occurrence: None)
  Receive Date: 20111123
  Receipt Date: 20111121
  Transmission Date: 20120403
  Serious: Yes (Hospitalization, Disabling, Other)
  Sender: FDA-Public Use
  Company Number: US-MERCK-1007USA03942

PATIENT
  Age: 54 Year
  Sex: Female
  Weight: 83 kg

DRUGS (3)
  1. FOSAMAX [Suspect]
     Indication: OSTEOPOROSIS PROPHYLAXIS
     Route: 048
     Dates: start: 20010601, end: 20080103
  2. FOSAMAX PLUS D [Suspect]
     Route: 048
     Dates: start: 20080228, end: 20090301
  3. ACTONEL [Suspect]
     Route: 048
     Dates: start: 20090401, end: 20090601

REACTIONS (52)
  - BONE DISORDER [None]
  - HEADACHE [None]
  - FIBROMYALGIA [None]
  - RHINORRHOEA [None]
  - LIVER DISORDER [None]
  - HYPERSENSITIVITY [None]
  - HIATUS HERNIA [None]
  - CONSTIPATION [None]
  - JOINT SWELLING [None]
  - ANXIETY [None]
  - LOW TURNOVER OSTEOPATHY [None]
  - URTICARIA [None]
  - DYSLIPIDAEMIA [None]
  - PERSONALITY CHANGE [None]
  - ENTEROCOCCAL INFECTION [None]
  - HYPOXIA [None]
  - DEPRESSION [None]
  - CELLULITIS [None]
  - FRACTURE NONUNION [None]
  - POSTOPERATIVE WOUND INFECTION [None]
  - WEIGHT INCREASED [None]
  - TONGUE DISCOLOURATION [None]
  - HYPOTENSION [None]
  - GASTROOESOPHAGEAL REFLUX DISEASE [None]
  - MEDICAL DEVICE COMPLICATION [None]
  - STREPTOCOCCAL INFECTION [None]
  - BREAST CALCIFICATIONS [None]
  - SPINAL DISORDER [None]
  - DEVICE FAILURE [None]
  - MUSCLE SPASMS [None]
  - AORTIC ARTERIOSCLEROSIS [None]
  - VARICOSE VEIN [None]
  - URINARY TRACT INFECTION [None]
  - STAPHYLOCOCCAL INFECTION [None]
  - SEROMA [None]
  - INSOMNIA [None]
  - DYSPEPSIA [None]
  - CARPAL TUNNEL SYNDROME [None]
  - FEMUR FRACTURE [None]
  - BACK PAIN [None]
  - OSTEOPOROSIS [None]
  - PATELLOFEMORAL PAIN SYNDROME [None]
  - SCOLIOSIS [None]
  - PAIN IN JAW [None]
  - STRESS FRACTURE [None]
  - OSTEOMYELITIS CHRONIC [None]
  - DERMATITIS ALLERGIC [None]
  - DRUG HYPERSENSITIVITY [None]
  - AMNESIA [None]
  - SPINAL OSTEOARTHRITIS [None]
  - INTERVERTEBRAL DISC PROTRUSION [None]
  - FACET JOINT SYNDROME [None]
